FAERS Safety Report 6077259-0 (Version None)
Quarter: 2009Q1

REPORT INFORMATION
  Report Type: 
  Country: None (occurrence: None)
  Receive Date: 20090213
  Receipt Date: 20090206
  Transmission Date: 20090719
  Serious: Yes (Death)
  Sender: FDA-Public Use
  Company Number: A0747122A

PATIENT
  Age: 60 Year
  Sex: Male
  Weight: 93.6 kg

DRUGS (7)
  1. AVANDIA [Suspect]
     Dosage: 4MG PER DAY
     Route: 048
     Dates: start: 20060310, end: 20060829
  2. AVANDAMET [Suspect]
     Route: 048
     Dates: start: 20050912, end: 20060826
  3. METFORMIN HCL [Concomitant]
  4. LISINOPRIL [Concomitant]
  5. LIPITOR [Concomitant]
  6. METOPROLOL TARTRATE [Concomitant]
  7. GLIPIZIDE [Concomitant]

REACTIONS (4)
  - ARTERIOSCLEROSIS [None]
  - ARTERIOSCLEROSIS CORONARY ARTERY [None]
  - CARDIAC ARREST [None]
  - HEART INJURY [None]
